FAERS Safety Report 6129789-0 (Version None)
Quarter: 2009Q1

REPORT INFORMATION
  Report Type: 
  Country: None (occurrence: None)
  Receive Date: 20090320
  Receipt Date: 20090313
  Transmission Date: 20090719
  Serious: Yes (Hospitalization)
  Sender: FDA-Public Use
  Company Number: 2009JP000842

PATIENT
  Age: 75 Year
  Sex: Female
  Weight: 58.8 kg

DRUGS (13)
  1. TACROLIMUS [Suspect]
     Indication: LUPUS NEPHRITIS
     Dosage: 1 MG, D, ORAL
     Route: 048
     Dates: start: 20071030
  2. PREDNISOLONE [Suspect]
     Indication: LUPUS NEPHRITIS
     Dosage: 7 MG, D, ORAL
     Route: 048
  3. OLMETEC (OLMESARTAN MEDOXOMIL) [Concomitant]
  4. LIPITOR [Concomitant]
  5. ASPIRIN [Concomitant]
  6. DORNER (BERAPROST SODIUM) [Concomitant]
  7. PERSANTIN [Concomitant]
  8. EPADEL-S (ETHYL ICOSAPENTATE) [Concomitant]
  9. MILLIS (GLYCERYL TRINITRATE) [Concomitant]
  10. BENET (RISEDRONATE SODIUM) [Concomitant]
  11. GASTER (FAMOTIDINE) ORODISPERSIBLE CR TABLET [Concomitant]
  12. MAGMITT (MAGNESIUM OXIDE) [Concomitant]
  13. RIZE (CLOTIAZEPAM) [Concomitant]

REACTIONS (5)
  - C-REACTIVE PROTEIN INCREASED [None]
  - INTERVERTEBRAL DISCITIS [None]
  - RED BLOOD CELL SEDIMENTATION RATE INCREASED [None]
  - SPONDYLITIS [None]
  - STAPHYLOCOCCAL INFECTION [None]
